FAERS Safety Report 8840968 (Version 5)
Quarter: 2013Q2

REPORT INFORMATION
  Report Type: Spontaneous
  Country: JP (occurrence: JP)
  Receive Date: 20121015
  Receipt Date: 20130606
  Transmission Date: 20140414
  Serious: Yes (Other)
  Sender: FDA-Public Use
  Company Number: JP-ELI_LILLY_AND_COMPANY-JP201203004489

PATIENT
  Age: 79 Year
  Sex: Male

DRUGS (5)
  1. FORTEO [Suspect]
     Indication: OSTEOPOROSIS
     Dosage: 20 UG, QD
     Route: 058
     Dates: start: 20120313
  2. FORTEO [Suspect]
     Dosage: 20 UG, QD
     Route: 058
  3. FORTEO [Suspect]
     Dosage: 20 UG, QD
     Route: 058
     Dates: end: 201303
  4. FORTEO [Suspect]
     Dosage: 20 UG, QD
     Route: 058
  5. CALCIUM [Concomitant]

REACTIONS (18)
  - Oesophageal carcinoma [Recovered/Resolved]
  - Laryngeal cancer [Not Recovered/Not Resolved]
  - Oesophageal carcinoma recurrent [Not Recovered/Not Resolved]
  - Cerebral infarction [Unknown]
  - Goitre [Unknown]
  - Dizziness [Not Recovered/Not Resolved]
  - Malaise [Unknown]
  - Decreased appetite [Recovering/Resolving]
  - Somnolence [Not Recovered/Not Resolved]
  - Diarrhoea [Not Recovered/Not Resolved]
  - Contusion [Unknown]
  - Injection site bruising [Unknown]
  - Insomnia [Unknown]
  - Balance disorder [Unknown]
  - Weight increased [Unknown]
  - Apathy [Unknown]
  - Medication error [Recovered/Resolved]
  - Blood uric acid increased [Recovered/Resolved]
